FAERS Safety Report 24753310 (Version 2)
Quarter: 2025Q1

REPORT INFORMATION
  Report Type: Spontaneous
  Country: CA (occurrence: CA)
  Receive Date: 20241219
  Receipt Date: 20250212
  Transmission Date: 20250408
  Serious: Yes (Other)
  Sender: CELLTRION
  Company Number: CA-PFIZER INC-202300288159

PATIENT

DRUGS (7)
  1. INFLECTRA [Suspect]
     Active Substance: INFLIXIMAB-DYYB
     Indication: Crohn^s disease
     Route: 042
     Dates: start: 20241010
  2. INFLECTRA [Suspect]
     Active Substance: INFLIXIMAB-DYYB
     Route: 042
     Dates: start: 20241210
  3. FOLIC ACID [Concomitant]
     Active Substance: FOLIC ACID
     Route: 065
     Dates: start: 2015
  4. METHOTREXATE [Concomitant]
     Active Substance: METHOTREXATE
     Indication: Crohn^s disease
     Route: 065
     Dates: start: 2015
  5. METHOTREXATE [Concomitant]
     Active Substance: METHOTREXATE
     Indication: Immunosuppression
     Dosage: 12.5 MG, WEEKLY
     Route: 048
  6. REMICADE [Concomitant]
     Active Substance: INFLIXIMAB
     Dates: start: 2015
  7. REMICADE [Concomitant]
     Active Substance: INFLIXIMAB
     Dates: start: 20230919

REACTIONS (2)
  - Nephrolithiasis [Recovering/Resolving]
  - Gastrointestinal fistula [Unknown]
